FAERS Safety Report 12418659 (Version 1)
Quarter: 2016Q2

REPORT INFORMATION
  Report Type: Spontaneous
  Country: US (occurrence: None)
  Receive Date: 20160527
  Receipt Date: 20160527
  Transmission Date: 20160815
  Serious: Yes (Hospitalization)
  Sender: FDA-Public Use
  Company Number: None

PATIENT
  Age: 62 Year
  Sex: Male
  Weight: 94.8 kg

DRUGS (2)
  1. TAXOL [Suspect]
     Active Substance: PACLITAXEL
     Dates: end: 20160509
  2. CARBOPLATIN. [Suspect]
     Active Substance: CARBOPLATIN
     Dates: end: 20160509

REACTIONS (8)
  - Postoperative wound infection [None]
  - Oesophagitis [None]
  - Hilar lymphadenopathy [None]
  - Pyrexia [None]
  - Dysphagia [None]
  - Radiation skin injury [None]
  - Haemorrhage [None]
  - Skin exfoliation [None]

NARRATIVE: CASE EVENT DATE: 20160515
